FAERS Safety Report 8760121 (Version 1)
Quarter: 2012Q4

REPORT INFORMATION
  Report Type: Spontaneous
  Country: US (occurrence: None)
  Receive Date: 20120829
  Receipt Date: 20120829
  Transmission Date: 20130627
  Serious: Yes (Life-Threatening, Disabling)
  Sender: FDA-Public Use
  Company Number: None

PATIENT
  Age: 73 Year
  Sex: Male
  Weight: 104.33 kg

DRUGS (1)
  1. ALPRAZOLAM [Suspect]
     Indication: ANXIETY

REACTIONS (5)
  - Rash generalised [None]
  - Pruritus [None]
  - Skin exfoliation [None]
  - Haemorrhage [None]
  - Tenderness [None]
